FAERS Safety Report 6829752-8 (Version None)
Quarter: 2010Q3

REPORT INFORMATION
  Report Type: 
  Country: None (occurrence: None)
  Receive Date: 20100709
  Receipt Date: 20070815
  Transmission Date: 20110219
  Serious: Yes (Other)
  Sender: FDA-Public Use
  Company Number: US-PFIZER INC-2007013018

PATIENT
  Age: 66 Year
  Sex: Male

DRUGS (10)
  1. CHANTIX [Suspect]
  2. DITROPAN XL [Concomitant]
  3. PLAVIX [Concomitant]
  4. ZESTORETIC [Concomitant]
  5. ISORDIL [Concomitant]
  6. ZANTAC [Concomitant]
  7. LIPITOR [Concomitant]
  8. CELEXA [Concomitant]
  9. NEURONTIN [Concomitant]
  10. ACETYLSALICYLIC ACID [Concomitant]

REACTIONS (2)
  - BRADYCARDIA [None]
  - SYNCOPE [None]
